FAERS Safety Report 19655821 (Version 1)
Quarter: 2021Q3

REPORT INFORMATION
  Report Type: Spontaneous
  Country: CN (occurrence: CN)
  Receive Date: 20210804
  Receipt Date: 20210804
  Transmission Date: 20211014
  Serious: Yes (Hospitalization)
  Sender: FDA-Public Use
  Company Number: CN-GLAXOSMITHKLINE-CN2021APC162497

PATIENT
  Age: 64 Year
  Sex: Female

DRUGS (6)
  1. SERETIDE [Suspect]
     Active Substance: FLUTICASONE PROPIONATE\SALMETEROL XINAFOATE
     Indication: OBSTRUCTIVE AIRWAYS DISORDER
     Dosage: UNK 50/500
     Dates: start: 2016, end: 2021
  2. MONTELUKAST [Suspect]
     Active Substance: MONTELUKAST SODIUM
     Indication: OBSTRUCTIVE AIRWAYS DISORDER
     Dosage: UNK
     Dates: start: 2016, end: 2021
  3. COMPOUND METHOXYPHENAMINE HYDROCHLORIDE [Suspect]
     Active Substance: AMINOPHYLLINE\CHLORPHENIRAMINE MALEATE\METHOXYPHENAMINE HYDROCHLORIDE\NOSCAPINE
     Indication: OBSTRUCTIVE AIRWAYS DISORDER
     Dosage: UNK
     Dates: start: 2016, end: 2021
  4. COMPOUND METHOXYPHENAMINE HYDROCHLORIDE [Suspect]
     Active Substance: AMINOPHYLLINE\CHLORPHENIRAMINE MALEATE\METHOXYPHENAMINE HYDROCHLORIDE\NOSCAPINE
     Indication: DYSPNOEA EXERTIONAL
  5. SERETIDE [Suspect]
     Active Substance: FLUTICASONE PROPIONATE\SALMETEROL XINAFOATE
     Indication: DYSPNOEA EXERTIONAL
  6. MONTELUKAST [Suspect]
     Active Substance: MONTELUKAST SODIUM
     Indication: DYSPNOEA EXERTIONAL

REACTIONS (13)
  - Nasopharyngitis [Recovered/Resolved]
  - Disease recurrence [Recovered/Resolved]
  - Productive cough [Recovered/Resolved]
  - Increased viscosity of bronchial secretion [Recovered/Resolved]
  - Dyspnoea [Recovered/Resolved]
  - Pyrexia [Recovered/Resolved]
  - Sputum discoloured [Recovered/Resolved]
  - Decreased appetite [Recovered/Resolved]
  - Depressed mood [Recovered/Resolved]
  - Drug ineffective for unapproved indication [Unknown]
  - Poor quality sleep [Recovered/Resolved]
  - Dyspnoea exertional [Recovered/Resolved]
  - Product use in unapproved indication [Unknown]

NARRATIVE: CASE EVENT DATE: 202106
